FAERS Safety Report 12004955 (Version 3)
Quarter: 2017Q1

REPORT INFORMATION
  Report Type: Spontaneous
  Country: BR (occurrence: BR)
  Receive Date: 20160204
  Receipt Date: 20170329
  Transmission Date: 20170428
  Serious: Yes (Other)
  Sender: FDA-Public Use
  Company Number: BR-JNJFOC-20160124843

PATIENT
  Sex: Female
  Weight: 44 kg

DRUGS (6)
  1. RISEDRONATE [Concomitant]
     Active Substance: RISEDRONATE SODIUM
     Route: 065
  2. EBASTEL [Concomitant]
     Active Substance: EBASTINE
     Route: 065
  3. EUTIROX [Concomitant]
     Active Substance: LEVOTHYROXINE SODIUM
     Route: 065
  4. AZULFIDINE [Concomitant]
     Active Substance: SULFASALAZINE
     Route: 065
  5. NIMODIPINE. [Concomitant]
     Active Substance: NIMODIPINE
     Route: 065
  6. SIMPONI [Suspect]
     Active Substance: GOLIMUMAB
     Indication: RHEUMATOID ARTHRITIS
     Route: 058
     Dates: start: 20150917

REACTIONS (10)
  - Finger amputation [Unknown]
  - Alopecia [Unknown]
  - Visual impairment [Unknown]
  - Weight decreased [Unknown]
  - Off label use [Unknown]
  - Dizziness [Unknown]
  - Osteoporosis [Unknown]
  - Drug ineffective [Unknown]
  - Osteoarthritis [Unknown]
  - Drug administration error [Unknown]
